FAERS Safety Report 25529582 (Version 1)
Quarter: 2025Q3

REPORT INFORMATION
  Report Type: Spontaneous
  Country: EU (occurrence: EU)
  Receive Date: 20250708
  Receipt Date: 20250708
  Transmission Date: 20251021
  Serious: Yes (Other)
  Sender: PFIZER
  Company Number: EU-EMB-M202407568-1

PATIENT
  Sex: Female
  Weight: 2.4 kg

DRUGS (4)
  1. LORAZEPAM [Suspect]
     Active Substance: LORAZEPAM
     Indication: Anxiety disorder
     Dosage: 2.5 MG, 3X/DAY
     Route: 064
     Dates: start: 202405, end: 202502
  2. LORAZEPAM [Suspect]
     Active Substance: LORAZEPAM
     Indication: Myopathy
  3. PREGABALIN [Suspect]
     Active Substance: PREGABALIN
     Indication: Myopathy
     Dosage: 75 MG, 3X/DAY
     Route: 064
     Dates: start: 202405, end: 202502
  4. MINERALS\VITAMINS [Concomitant]
     Active Substance: MINERALS\VITAMINS
     Indication: Vitamin supplementation
     Dosage: UNK, DAILY
     Route: 064
     Dates: start: 202408, end: 202408

REACTIONS (2)
  - Maternal exposure during pregnancy [Recovering/Resolving]
  - Small for dates baby [Recovering/Resolving]

NARRATIVE: CASE EVENT DATE: 20240501
